FAERS Safety Report 19658143 (Version 5)
Quarter: 2021Q3

REPORT INFORMATION
  Report Type: Report from Study
  Country: JP (occurrence: JP)
  Receive Date: 20210804
  Receipt Date: 20210922
  Transmission Date: 20211014
  Serious: Yes (Hospitalization)
  Sender: FDA-Public Use
  Company Number: JP-EISAI MEDICAL RESEARCH-EC-2021-097133

PATIENT
  Age: 71 Year
  Sex: Male
  Weight: 48.7 kg

DRUGS (14)
  1. ALDACTONE A [Concomitant]
     Active Substance: SPIRONOLACTONE
     Dates: start: 20210720
  2. NERIPROCT [Concomitant]
     Active Substance: DIFLUCORTOLONE VALERATE\LIDOCAINE
     Dates: start: 20200919, end: 20210727
  3. PEMBROLIZUMAB. [Suspect]
     Active Substance: PEMBROLIZUMAB
     Indication: COLORECTAL CANCER
     Route: 041
     Dates: start: 20210518, end: 20210518
  4. SATOSALBE [Concomitant]
     Active Substance: ZINC OXIDE
     Dates: start: 20210517, end: 20210727
  5. ADLUMIZ [Concomitant]
     Dates: start: 20210713
  6. LENVATINIB [Suspect]
     Active Substance: LENVATINIB
     Route: 048
     Dates: start: 20210618, end: 20210618
  7. PEMBROLIZUMAB. [Suspect]
     Active Substance: PEMBROLIZUMAB
     Route: 041
     Dates: start: 20210629, end: 20210629
  8. LENVATINIB [Suspect]
     Active Substance: LENVATINIB
     Indication: COLORECTAL CANCER
     Dosage: STARTING DOSE AT 20 MILLIGRAM, FLUCTUATED DOSAGE
     Route: 048
     Dates: start: 20210518, end: 20210617
  9. MAGMITT [Concomitant]
     Active Substance: MAGNESIUM OXIDE
     Dates: start: 20210607
  10. LOXONIN [Concomitant]
     Active Substance: LOXOPROFEN SODIUM
     Dates: start: 20190612
  11. XARELTO [Concomitant]
     Active Substance: RIVAROXABAN
     Dates: start: 20210115
  12. AZUNOL [GUAIAZULENE] [Concomitant]
     Active Substance: GUAIAZULENE
     Dates: start: 20210427, end: 20210727
  13. LACTULOSE. [Concomitant]
     Active Substance: LACTULOSE
     Dates: start: 20210601
  14. TAKECAB [Concomitant]
     Active Substance: VONOPRAZAN FUMARATE
     Dates: start: 20210713

REACTIONS (1)
  - Coronary artery stenosis [Recovered/Resolved]

NARRATIVE: CASE EVENT DATE: 20210728
